FAERS Safety Report 7573479-4 (Version None)
Quarter: 2011Q2

REPORT INFORMATION
  Report Type: 
  Country: None (occurrence: None)
  Receive Date: 20110627
  Receipt Date: 20110617
  Transmission Date: 20111010
  Serious: Yes (Hospitalization, Other)
  Sender: FDA-Public Use
  Company Number: JP-JNJFOC-20110601139

PATIENT
  Sex: Female

DRUGS (2)
  1. LEVOFLOXACIN [Suspect]
     Indication: DECUBITUS ULCER
     Route: 048
     Dates: start: 20110502, end: 20110512
  2. LEVOFLOXACIN [Suspect]
     Indication: INFECTION
     Route: 048
     Dates: start: 20110502, end: 20110512

REACTIONS (2)
  - THROMBOCYTOPENIA [None]
  - HAEMATOMA [None]
